FAERS Safety Report 9948759 (Version 1)
Quarter: 2014Q1

REPORT INFORMATION
  Report Type: Spontaneous
  Country: DK (occurrence: DK)
  Receive Date: 20140304
  Receipt Date: 20140304
  Transmission Date: 20141002
  Serious: Yes (Other)
  Sender: FDA-Public Use
  Company Number: DK-AMGEN-DNKSP2014013875

PATIENT
  Age: 68 Year
  Sex: Female

DRUGS (3)
  1. XGEVA [Suspect]
     Indication: BREAST CANCER METASTATIC
     Dosage: 120 MG, Q4WK
     Route: 065
     Dates: start: 201208
  2. ZOMETA [Suspect]
     Indication: BREAST CANCER METASTATIC
     Dosage: 4 MG, QMO
     Route: 042
     Dates: start: 200905, end: 201006
  3. PREDNISOLON [Concomitant]
     Indication: BREAST CANCER METASTATIC
     Dates: start: 20090704

REACTIONS (1)
  - Osteonecrosis of jaw [Recovering/Resolving]
